FAERS Safety Report 21879856 (Version 1)
Quarter: 2023Q1

REPORT INFORMATION
  Report Type: Spontaneous
  Country: US (occurrence: None)
  Receive Date: 20230117
  Receipt Date: 20230117
  Transmission Date: 20230418
  Serious: No
  Sender: FDA-Public Use
  Company Number: None

PATIENT
  Age: 28 Year
  Sex: Female
  Weight: 51.75 kg

DRUGS (1)
  1. CIPROFLOXACIN [Suspect]
     Active Substance: CIPROFLOXACIN
     Indication: Urinary tract infection

REACTIONS (7)
  - Rash pruritic [None]
  - Rash [None]
  - Thirst [None]
  - Irritability [None]
  - Pollakiuria [None]
  - Nocturia [None]
  - Diabetes insipidus [None]

NARRATIVE: CASE EVENT DATE: 20210209
